FAERS Safety Report 6518940-6 (Version None)
Quarter: 2009Q4

REPORT INFORMATION
  Report Type: 
  Country: None (occurrence: None)
  Receive Date: 20091228
  Receipt Date: 20091216
  Transmission Date: 20100525
  Serious: Yes (Life-Threatening, Hospitalization)
  Sender: FDA-Public Use
  Company Number: IT-BRISTOL-MYERS SQUIBB COMPANY-14899082

PATIENT
  Age: 66 Year
  Sex: Male
  Weight: 62 kg

DRUGS (5)
  1. CETUXIMAB [Suspect]
     Indication: HEAD AND NECK CANCER
     Dosage: MOST RECENT DOSE ON 10DEC09.
     Route: 042
     Dates: start: 20091203
  2. CISPLATIN [Suspect]
     Indication: HEAD AND NECK CANCER
     Route: 042
     Dates: start: 20091203
  3. CILENGITIDE [Suspect]
     Indication: HEAD AND NECK CANCER
     Dosage: MOST RECENT INFUSION  ON 10DEC09.
     Route: 042
     Dates: start: 20091203
  4. FLUOROURACIL [Suspect]
     Indication: HEAD AND NECK CANCER
     Dosage: CONTINOUS INFUSION FROM DAY 1 TO DAY 4 OF CYCLE (6720 MG/M2).
     Route: 042
     Dates: start: 20091203
  5. CARDIOSTENOL [Concomitant]
     Dates: start: 19640101

REACTIONS (5)
  - FATIGUE [None]
  - HYPOTENSION [None]
  - LEUKOPENIA [None]
  - NEUTROPENIA [None]
  - SEPSIS [None]
